FAERS Safety Report 5177170-3 (Version None)
Quarter: 2006Q4

REPORT INFORMATION
  Report Type: 
  Country: None (occurrence: None)
  Receive Date: 20061218
  Receipt Date: 20061031
  Transmission Date: 20070319
  Serious: Yes (Death, Other)
  Sender: FDA-Public Use
  Company Number: PHBS2006JP16971

PATIENT
  Age: 70 Year
  Sex: Male
  Weight: 150 kg

DRUGS (9)
  1. ZOMETA [Suspect]
     Indication: METASTASES TO BONE
     Dosage: 4 MG
     Route: 042
     Dates: start: 20060912, end: 20060912
  2. ZOMETA [Suspect]
     Dosage: 4 MG
     Route: 042
     Dates: start: 20061003, end: 20061003
  3. TAXOTERE [Concomitant]
     Indication: PROSTATE CANCER
     Dosage: 20 MG/DAY
     Route: 042
     Dates: start: 20060915, end: 20060922
  4. LOXONIN [Concomitant]
     Dosage: 3 DF/DAY
     Route: 048
  5. HONVAN [Concomitant]
     Indication: PROSTATE CANCER
     Dosage: 300 MG/DAY
     Route: 048
     Dates: start: 20060912, end: 20061113
  6. ESTRACYT                                /SCH/ [Concomitant]
     Indication: PROSTATE CANCER
     Dosage: 4 DF/DAY
     Route: 048
     Dates: start: 20060314, end: 20060912
  7. CASODEX [Concomitant]
     Indication: PROSTATE CANCER
     Dosage: 1 DF/DAY
     Route: 048
     Dates: start: 20060719, end: 20060816
  8. OXYCONTIN [Concomitant]
     Indication: PAIN
     Dosage: 10 MG/DAY
     Route: 048
     Dates: start: 20060731, end: 20060812
  9. CORTRIL [Concomitant]
     Indication: PROSTATE CANCER
     Dosage: 10 MG/DAY
     Route: 048
     Dates: start: 20060830, end: 20061113

REACTIONS (7)
  - MALAISE [None]
  - MALIGNANT NEOPLASM PROGRESSION [None]
  - OSTEONECROSIS [None]
  - PAIN IN JAW [None]
  - PERIODONTAL INFECTION [None]
  - PNEUMONIA [None]
  - TOOTHACHE [None]
